FAERS Safety Report 20362670 (Version 2)
Quarter: 2022Q1

REPORT INFORMATION
  Report Type: Report from Study
  Country: US (occurrence: US)
  Receive Date: 20220121
  Receipt Date: 20220309
  Transmission Date: 20220423
  Serious: No
  Sender: FDA-Public Use
  Company Number: US-NOVARTISTESTPH-NVSC2022US012957

PATIENT
  Age: 44 Year
  Sex: Male

DRUGS (6)
  1. ENTRESTO [Suspect]
     Active Substance: SACUBITRIL\VALSARTAN
     Indication: Product used for unknown indication
     Dosage: 1 DOSAGE FORM, BID
     Route: 048
     Dates: start: 202003
  2. ENTRESTO [Suspect]
     Active Substance: SACUBITRIL\VALSARTAN
     Dosage: 1 DOSAGE FORM, BID
     Route: 048
     Dates: start: 202003
  3. GABAPENTIN [Suspect]
     Active Substance: GABAPENTIN
     Indication: Neuropathy peripheral
     Dosage: 600 MG, TID
     Route: 048
  4. ZINC [Concomitant]
     Active Substance: ZINC
     Indication: Product used for unknown indication
     Dosage: UNK (AROUND 2PM WITH HIS AFTERNOON PILLS)
     Route: 065
  5. VITAMIN C [Concomitant]
     Active Substance: ASCORBIC ACID
     Indication: Product used for unknown indication
     Dosage: UNK (AROUND 2PM WITH HIS AFTERNOON PILLS)
     Route: 065
  6. VITAMIN D [Concomitant]
     Active Substance: VITAMIN D NOS
     Indication: Product used for unknown indication
     Dosage: UNK (AROUND 2PM WITH HIS AFTERNOON PILLS)
     Route: 065

REACTIONS (5)
  - Rotator cuff syndrome [Unknown]
  - Pain [Unknown]
  - Seasonal allergy [Unknown]
  - Cough [Unknown]
  - Dysphonia [Unknown]

NARRATIVE: CASE EVENT DATE: 20211229
